FAERS Safety Report 4791624-0 (Version None)
Quarter: 2005Q4

REPORT INFORMATION
  Report Type: 
  Country: None (occurrence: None)
  Receive Date: 20051007
  Receipt Date: 20050728
  Transmission Date: 20060501
  Serious: No
  Sender: FDA-Public Use
  Company Number: US-BRISTOL-MYERS SQUIBB COMPANY-13056254

PATIENT

DRUGS (3)
  1. AVAPRO [Suspect]
  2. DIFLUCAN [Interacting]
  3. DIOVAN [Interacting]

REACTIONS (2)
  - ADVERSE EVENT [None]
  - DRUG INTERACTION [None]
